FAERS Safety Report 24420386 (Version 9)
Quarter: 2025Q3

REPORT INFORMATION
  Report Type: Report from Study
  Country: US (occurrence: US)
  Receive Date: 20241010
  Receipt Date: 20250908
  Transmission Date: 20251021
  Serious: Yes (Hospitalization, Other)
  Sender: TAKEDA
  Company Number: US-TAKEDA-2024TUS100045

PATIENT
  Age: 30 Year
  Sex: Female

DRUGS (2)
  1. VEDOLIZUMAB [Suspect]
     Active Substance: VEDOLIZUMAB
     Indication: Crohn^s disease
  2. PREDNISONE [Suspect]
     Active Substance: PREDNISONE
     Indication: Crohn^s disease

REACTIONS (18)
  - Crohn^s disease [Recovered/Resolved]
  - Haematochezia [Not Recovered/Not Resolved]
  - Clostridium difficile infection [Recovered/Resolved]
  - Skin hyperpigmentation [Not Recovered/Not Resolved]
  - Headache [Recovered/Resolved]
  - Somnolence [Not Recovered/Not Resolved]
  - Drug effect less than expected [Unknown]
  - Inappropriate schedule of product administration [Unknown]
  - Viral infection [Recovered/Resolved]
  - Bacterial infection [Recovered/Resolved]
  - Eructation [Not Recovered/Not Resolved]
  - Dyspepsia [Not Recovered/Not Resolved]
  - Gastrooesophageal reflux disease [Not Recovered/Not Resolved]
  - Abdominal discomfort [Recovered/Resolved]
  - Abdominal pain [Recovered/Resolved]
  - Constipation [Not Recovered/Not Resolved]
  - Fatigue [Not Recovered/Not Resolved]
  - Weight decreased [Recovered/Resolved]

NARRATIVE: CASE EVENT DATE: 20241119
